FAERS Safety Report 7948725-5 (Version None)
Quarter: 2011Q4

REPORT INFORMATION
  Report Type: 
  Country: None (occurrence: None)
  Receive Date: 20111130
  Receipt Date: 20111125
  Transmission Date: 20120403
  Serious: Yes (Life-Threatening, Hospitalization)
  Sender: FDA-Public Use
  Company Number: FR-JNJFOC-20090700089

PATIENT
  Sex: Female

DRUGS (9)
  1. LEUCOVORIN CALCIUM [Suspect]
     Indication: EYE INFECTION TOXOPLASMAL
     Route: 048
     Dates: start: 20090403, end: 20090501
  2. SULFADIAZINE [Suspect]
     Indication: EYE INFECTION TOXOPLASMAL
     Route: 048
     Dates: start: 20090403, end: 20090501
  3. OMEPRAZOLE [Suspect]
     Indication: PRODUCT USED FOR UNKNOWN INDICATION
     Route: 048
     Dates: start: 20090407, end: 20090501
  4. HOLGYEME [Concomitant]
     Route: 048
     Dates: start: 20081001
  5. PREDNISONE TAB [Concomitant]
     Route: 065
     Dates: start: 20090407, end: 20090501
  6. PYRIDOXINE HCL [Suspect]
     Indication: PRODUCT USED FOR UNKNOWN INDICATION
     Route: 048
     Dates: start: 20090417, end: 20090501
  7. CARDIOCALM [Suspect]
     Indication: PRODUCT USED FOR UNKNOWN INDICATION
     Route: 065
     Dates: start: 20090417, end: 20090501
  8. PYRIMETHAMINE TAB [Suspect]
     Indication: EYE INFECTION TOXOPLASMAL
     Route: 048
     Dates: start: 20090403, end: 20090501
  9. ACETAMINOPHEN AND TRAMADOL HCL [Suspect]
     Indication: NECK PAIN
     Route: 048
     Dates: start: 20090417, end: 20090425

REACTIONS (1)
  - DRUG RASH WITH EOSINOPHILIA AND SYSTEMIC SYMPTOMS [None]
